FAERS Safety Report 6243246-2 (Version None)
Quarter: 2009Q2

REPORT INFORMATION
  Report Type: 
  Country: None (occurrence: None)
  Receive Date: 20090622
  Receipt Date: 20090616
  Transmission Date: 20091009
  Serious: Yes (Other)
  Sender: FDA-Public Use
  Company Number: CHNY2009FR02428

PATIENT

DRUGS (1)
  1. NICOTINE [Suspect]
     Dosage: , TRANSDERMAL
     Route: 062

REACTIONS (2)
  - ARTERIOSPASM CORONARY [None]
  - MYOCARDIAL ISCHAEMIA [None]
